FAERS Safety Report 22661148 (Version 1)
Quarter: 2023Q2

REPORT INFORMATION
  Report Type: Spontaneous
  Country: ES (occurrence: ES)
  Receive Date: 20230630
  Receipt Date: 20230630
  Transmission Date: 20230721
  Serious: Yes (Hospitalization)
  Sender: FDA-Public Use
  Company Number: None

PATIENT
  Age: 52 Year
  Sex: Female

DRUGS (5)
  1. PROZAC [Interacting]
     Active Substance: FLUOXETINE HYDROCHLORIDE
     Indication: Suicide attempt
     Dosage: 1-0.5-0 UNKNOWN AMOUNT OF OVERINGESTION 06/19/2023
     Route: 048
     Dates: start: 20230619, end: 20230619
  2. NEURONTIN [Interacting]
     Active Substance: GABAPENTIN
     Indication: Suicide attempt
     Dosage: 1-0-1. AMOUNT OF OVERINGESTION UNKNOWN
     Route: 048
     Dates: start: 20230619, end: 20230619
  3. LORMETAZEPAM [Interacting]
     Active Substance: LORMETAZEPAM
     Indication: Suicide attempt
     Dosage: 0-0-1 UNKNOWN AMOUNT OF OVERINGESTION
     Route: 048
     Dates: start: 20230619, end: 20230619
  4. LITHIUM CARBONATE [Interacting]
     Active Substance: LITHIUM CARBONATE
     Indication: Suicide attempt
     Dosage: 400 MG IN THE MORNING, 200 AT NOON) CHRONIC UNKNOWN AMOUNT OF OVERINGESTION
     Route: 048
     Dates: start: 20230619, end: 20230619
  5. LAMICTAL [Interacting]
     Active Substance: LAMOTRIGINE
     Indication: Suicide attempt
     Dosage: 1-0-0 -UNKNOWN AMOUNT OF OVERINGESTION
     Route: 048
     Dates: start: 20230619, end: 20230619

REACTIONS (1)
  - Depressed level of consciousness [Recovered/Resolved]

NARRATIVE: CASE EVENT DATE: 20230619
